FAERS Safety Report 19740753 (Version 2)
Quarter: 2021Q3

REPORT INFORMATION
  Report Type: Report from Study
  Country: GB (occurrence: GB)
  Receive Date: 20210824
  Receipt Date: 20210901
  Transmission Date: 20211014
  Serious: Yes (Hospitalization)
  Sender: FDA-Public Use
  Company Number: GB-PFIZER INC-202101045591

PATIENT
  Age: 60 Year
  Sex: Male

DRUGS (5)
  1. CYTARABINE. [Concomitant]
     Active Substance: CYTARABINE
     Dosage: UNK
     Dates: start: 20210701, end: 20210711
  2. DAUNORUBICIN HCL [Concomitant]
     Active Substance: DAUNORUBICIN HYDROCHLORIDE
     Dosage: UNK
     Dates: start: 20210701, end: 20210705
  3. MYLOTARG [Suspect]
     Active Substance: GEMTUZUMAB OZOGAMICIN
     Dosage: 3 MG/M2
     Route: 042
     Dates: start: 20210705, end: 20210708
  4. MIDOSTAURIN [Suspect]
     Active Substance: MIDOSTAURIN
     Dosage: UNK
     Dates: start: 20210712, end: 20210725
  5. G?CSF [Concomitant]
     Active Substance: GRANULOCYTE COLONY-STIMULATING FACTOR NOS
     Dosage: UNK
     Dates: start: 20210712, end: 20210716

REACTIONS (1)
  - Lower respiratory tract infection fungal [Recovered/Resolved]

NARRATIVE: CASE EVENT DATE: 20210713
